FAERS Safety Report 5021476-5 (Version None)
Quarter: 2006Q2

REPORT INFORMATION
  Report Type: 
  Country: None (occurrence: None)
  Receive Date: 20060608
  Receipt Date: 20060511
  Transmission Date: 20061013
  Serious: Yes (Other)
  Sender: FDA-Public Use
  Company Number: PHEH2006US06400

PATIENT
  Sex: Male

DRUGS (3)
  1. FORADIL [Suspect]
     Indication: BRONCHOSPASM
     Dosage: UNK, BID
     Dates: start: 20041123
  2. SINGULAIR [Concomitant]
     Dosage: 10MG
  3. PAXIL [Concomitant]
     Dosage: 20MG, QD

REACTIONS (4)
  - BRONCHOSPASM [None]
  - COUGH [None]
  - DEVICE FAILURE [None]
  - FOREIGN BODY TRAUMA [None]
